FAERS Safety Report 11294594 (Version 1)
Quarter: 2015Q3

REPORT INFORMATION
  Report Type: Spontaneous
  Country: IT (occurrence: None)
  Receive Date: 20150721
  Receipt Date: 20150721
  Transmission Date: 20151125
  Serious: Yes (Hospitalization)
  Sender: FDA-Public Use
  Company Number: KAD201507-002198

PATIENT
  Age: 72 Year
  Sex: Female

DRUGS (6)
  1. CITALOPRAM HYDROBROMIDE (CITALOPRAM HYDROBROMIDE ) [Concomitant]
  2. CLEXANE T(ENOXAPARIN SODIUM) (ENOXAPARIN SODIUM) [Concomitant]
  3. RIBAVIRIN (RIBAVIRIN) [Suspect]
     Active Substance: RIBAVIRIN
     Indication: HEPATITIS C ANTIBODY POSITIVE
     Dosage: TABLET, 1000 MG (1 IN 1 DAY), ORAL
     Route: 048
     Dates: start: 20150608
  4. HALICON (TRIAZOLAM) (TRIAZOLAM) [Concomitant]
  5. LEVOFLOXACIN (LEVOFLOXACIN) (LEVOFLOXACIN) [Concomitant]
  6. SOVALDI [Suspect]
     Active Substance: SOFOSBUVIR
     Indication: HEPATITIS C ANTIBODY POSITIVE
     Dosage: COATED TABLET, 400 MG (1 IN 1 DAY), ORAL
     Route: 048
     Dates: start: 20150608

REACTIONS (2)
  - Head injury [None]
  - Balance disorder [None]

NARRATIVE: CASE EVENT DATE: 20150626
